FAERS Safety Report 5170645-2 (Version None)
Quarter: 2006Q4

REPORT INFORMATION
  Report Type: 
  Country: None (occurrence: None)
  Receive Date: 20061201
  Receipt Date: 20061116
  Transmission Date: 20070319
  Serious: Yes (Hospitalization)
  Sender: FDA-Public Use
  Company Number: 8019865

PATIENT
  Age: 6 Month
  Weight: 7.8 kg

DRUGS (4)
  1. KEPPRA [Suspect]
     Indication: EPILEPSY
     Dosage: 30 MG/KG /D PO
     Route: 048
     Dates: start: 20061014
  2. KEPPRA [Suspect]
     Indication: EPILEPSY
     Dosage: 50 MG/KG /D PO
     Route: 048
     Dates: start: 20061026
  3. SABRIL [Concomitant]
  4. PHENOBARBITAL TAB [Concomitant]

REACTIONS (2)
  - ACCIDENTAL OVERDOSE [None]
  - SOMNOLENCE [None]
